FAERS Safety Report 21130153 (Version 6)
Quarter: 2024Q1

REPORT INFORMATION
  Report Type: Spontaneous
  Country: JP (occurrence: JP)
  Receive Date: 20220726
  Receipt Date: 20240313
  Transmission Date: 20240409
  Serious: Yes (Other)
  Sender: FDA-Public Use
  Company Number: JP-TAKEDA-2022TJP067230

PATIENT
  Age: 8 Decade
  Sex: Male

DRUGS (3)
  1. NIVOLUMAB [Suspect]
     Active Substance: NIVOLUMAB
     Indication: Renal cell carcinoma
     Dosage: UNK
     Dates: start: 20220510
  2. CABOMETYX [Suspect]
     Active Substance: CABOZANTINIB S-MALATE
     Indication: Renal cell carcinoma
     Route: 048
     Dates: start: 20220510
  3. CABOMETYX [Suspect]
     Active Substance: CABOZANTINIB S-MALATE
     Route: 048

REACTIONS (5)
  - Proteinuria [Recovered/Resolved]
  - Hypertension [Recovered/Resolved]
  - Adrenal insufficiency [Recovering/Resolving]
  - Malignant neoplasm progression [Unknown]
  - Diarrhoea [Not Recovered/Not Resolved]

NARRATIVE: CASE EVENT DATE: 20220601
